FAERS Safety Report 4891925-1 (Version None)
Quarter: 2006Q1

REPORT INFORMATION
  Report Type: 
  Country: None (occurrence: None)
  Receive Date: 20060123
  Receipt Date: 20060110
  Transmission Date: 20060701
  Serious: Yes (Hospitalization)
  Sender: FDA-Public Use
  Company Number: FR200601001273

PATIENT
  Age: 68 Year
  Sex: Male

DRUGS (5)
  1. CIALIS [Suspect]
     Dosage: 1 D/F, AS  NEEDED, ORAL
     Route: 048
  2. ZOXAN LP (DOXAZOSIN) [Concomitant]
  3. FENOFIBRATE [Concomitant]
  4. TENORDATE (ATENOLOL, NIFEDIPINE) CAPSULE [Concomitant]
  5. KENZEN (CANDESARTAN CILEXETIL) [Concomitant]

REACTIONS (3)
  - DRUG INTERACTION [None]
  - LOSS OF CONSCIOUSNESS [None]
  - MALAISE [None]
